FAERS Safety Report 9687538 (Version 5)
Quarter: 2014Q2

REPORT INFORMATION
  Report Type: Report from Study
  Country: JP (occurrence: JP)
  Receive Date: 20131114
  Receipt Date: 20140429
  Transmission Date: 20141212
  Serious: Yes (Other)
  Sender: FDA-Public Use
  Company Number: JP-JNJFOC-20131104854

PATIENT
  Age: 60 Year
  Sex: Male
  Weight: 65 kg

DRUGS (6)
  1. STELARA [Suspect]
     Indication: PSORIASIS
     Route: 058
     Dates: start: 20120807, end: 20120807
  2. STELARA [Suspect]
     Indication: PSORIASIS
     Route: 058
     Dates: end: 20121127
  3. STELARA [Suspect]
     Indication: PSORIASIS
     Route: 058
     Dates: start: 20120904, end: 20120904
  4. CICLOSPORIN [Concomitant]
     Indication: PSORIASIS
     Route: 048
     Dates: start: 20120809, end: 20120904
  5. MAXACALCITOL [Concomitant]
     Indication: PSORIASIS
     Route: 061
     Dates: start: 20120807
  6. CLOBETASOL PROPIONATE [Concomitant]
     Indication: PSORIASIS
     Route: 061
     Dates: start: 20120807

REACTIONS (1)
  - Otitis media [Recovered/Resolved]
